FAERS Safety Report 10301097 (Version 1)
Quarter: 2014Q3

REPORT INFORMATION
  Report Type: Spontaneous
  Country: US (occurrence: None)
  Receive Date: 20140709
  Receipt Date: 20140709
  Transmission Date: 20150326
  Serious: Yes (Other)
  Sender: FDA-Public Use
  Company Number: None

PATIENT
  Age: 53 Year
  Sex: Female
  Weight: 81.65 kg

DRUGS (7)
  1. LEVOTHYROXINE [Concomitant]
     Active Substance: LEVOTHYROXINE
  2. TETRACYCLINE [Concomitant]
     Active Substance: TETRACYCLINE
  3. C.V.S. SPECTRAVITE SENIOR MULTIVITAMIN/MULTIMINERAL [Concomitant]
  4. EFFEXOR XR [Suspect]
     Active Substance: VENLAFAXINE HYDROCHLORIDE
     Indication: DEPRESSION
     Dosage: I THINK THE HIGEST DOSE WAS 250? ALSO, I TOOK 150 + LOWER, 1 CAPSULE, 1 PER DAY, MOUTH
     Route: 048
     Dates: start: 200208
  5. SERETIDE [Concomitant]
     Active Substance: FLUTICASONE FUROATE\SALMETEROL XINAFOATE
  6. FELIXINE ER [Suspect]
     Active Substance: VENLAFAXINE HYDROCHLORIDE
  7. SPIRONOLACTONE-HCTZ [Concomitant]

REACTIONS (7)
  - Fear [None]
  - Depression [None]
  - Anxiety [None]
  - Drug withdrawal syndrome [None]
  - Panic reaction [None]
  - Gastroenteritis viral [None]
  - Drug dependence [None]

NARRATIVE: CASE EVENT DATE: 200208
